FAERS Safety Report 8160952-3 (Version None)
Quarter: 2012Q1

REPORT INFORMATION
  Report Type: 
  Country: None (occurrence: None)
  Receive Date: 20120223
  Receipt Date: 20120214
  Transmission Date: 20120608
  Serious: Yes (Hospitalization, Other)
  Sender: FDA-Public Use
  Company Number: US-ASTRAZENECA-2011SE49546

PATIENT
  Age: 73 Year
  Sex: Female
  Weight: 68 kg

DRUGS (20)
  1. SEROQUEL [Suspect]
     Route: 048
     Dates: start: 20110801
  2. SEROQUEL [Suspect]
     Route: 048
  3. SEROQUEL [Suspect]
     Route: 048
  4. SEROQUEL [Suspect]
     Route: 048
     Dates: start: 20110801
  5. SEROQUEL [Suspect]
     Route: 048
  6. SEROQUEL [Suspect]
     Indication: SCHIZOPHRENIA
     Route: 048
  7. SEROQUEL [Suspect]
     Route: 048
  8. SEROQUEL [Suspect]
     Route: 048
     Dates: start: 20110801
  9. SEROQUEL [Suspect]
     Indication: PARANOIA
     Route: 048
  10. SEROQUEL [Suspect]
     Route: 048
  11. SEROQUEL [Suspect]
     Route: 048
  12. SEROQUEL [Suspect]
     Route: 048
  13. SEROQUEL [Suspect]
     Route: 048
  14. ATIVAN [Concomitant]
     Indication: ANXIETY
  15. PROSAC [Concomitant]
     Indication: ANXIETY
  16. SEROQUEL [Suspect]
     Indication: BIPOLAR DISORDER
     Route: 048
  17. SEROQUEL [Suspect]
     Route: 048
  18. SEROQUEL [Suspect]
     Route: 048
  19. SEROQUEL [Suspect]
     Route: 048
  20. SEROQUEL [Suspect]
     Route: 048

REACTIONS (21)
  - PARANOIA [None]
  - PARANOID PERSONALITY DISORDER [None]
  - DRY MOUTH [None]
  - ABNORMAL BEHAVIOUR [None]
  - WEIGHT INCREASED [None]
  - DEMENTIA [None]
  - HALLUCINATION, AUDITORY [None]
  - ANXIETY [None]
  - DELUSION [None]
  - PERSONALITY DISORDER [None]
  - FEELING ABNORMAL [None]
  - DRUG EFFECT DECREASED [None]
  - WRONG TECHNIQUE IN DRUG USAGE PROCESS [None]
  - PSYCHIATRIC SYMPTOM [None]
  - FAECES HARD [None]
  - SUSPICIOUSNESS [None]
  - SLOW RESPONSE TO STIMULI [None]
  - DISORIENTATION [None]
  - INAPPROPRIATE AFFECT [None]
  - EMOTIONAL DISTRESS [None]
  - TREMOR [None]
